FAERS Safety Report 11300738 (Version 2)
Quarter: 2015Q3

REPORT INFORMATION
  Report Type: Report from Study
  Country: US (occurrence: None)
  Receive Date: 20150722
  Receipt Date: 20150731
  Transmission Date: 20151125
  Serious: Yes (Hospitalization)
  Sender: FDA-Public Use
  Company Number: US-2015VAL000428

PATIENT
  Age: 53 Year
  Sex: Male
  Weight: 76.9 kg

DRUGS (14)
  1. CIALIS [Concomitant]
     Active Substance: TADALAFIL
  2. TRAMADOL. [Concomitant]
     Active Substance: TRAMADOL
  3. LIPITOR [Concomitant]
     Active Substance: ATORVASTATIN CALCIUM
  4. TYLENOL [Concomitant]
     Active Substance: ACETAMINOPHEN
  5. ROBAXIN (METHOCARBAMOL) [Concomitant]
  6. CANAKINUMAB VS PLACEBO (CODE NOT BROKEN) (CANAKINUMAB VS PLACEBO (CODE NOT BROKEN)) POWDER FOR SOLUTION FOR INJECTION [Suspect]
     Active Substance: CANAKINUMAB
     Indication: CARDIOVASCULAR EVENT PROPHYLAXIS
     Dosage: CODE NOT BROKEN, SUBCUTANEOUS
     Route: 058
     Dates: start: 20110701, end: 20150619
  7. HYDROCHLOROTHIAZIDE. [Concomitant]
     Active Substance: HYDROCHLOROTHIAZIDE
  8. IBUPROFEN SANDOZ (IBUPROFEN) [Suspect]
     Active Substance: IBUPROFEN
     Indication: PRODUCT USED FOR UNKNOWN INDICATION
     Route: 048
  9. CADUET [Suspect]
     Active Substance: AMLODIPINE BESYLATE\ATORVASTATIN CALCIUM
     Indication: HYPERTENSION
     Dates: start: 20120302
  10. PRAVASTATIN [Concomitant]
     Active Substance: PRAVASTATIN\PRAVASTATIN SODIUM
  11. METOPROLOL TARTRATE. [Suspect]
     Active Substance: METOPROLOL TARTRATE
     Indication: BLOOD PRESSURE ABNORMAL
     Dates: start: 200711, end: 20120301
  12. LISINOPRIL (LISINOPRIL) [Suspect]
     Active Substance: LISINOPRIL
     Indication: BLOOD PRESSURE ABNORMAL
     Dates: start: 200711, end: 20120301
  13. ASPIRIN. [Concomitant]
     Active Substance: ASPIRIN
  14. SIMVASTATIN. [Concomitant]
     Active Substance: SIMVASTATIN

REACTIONS (8)
  - Paraesthesia [None]
  - Hypotension [None]
  - Blood glucose increased [None]
  - Muscle spasms [None]
  - Musculoskeletal chest pain [None]
  - Acute kidney injury [None]
  - Plantar fasciitis [None]
  - Back pain [None]

NARRATIVE: CASE EVENT DATE: 20150619
